FAERS Safety Report 25261465 (Version 1)
Quarter: 2025Q2

REPORT INFORMATION
  Report Type: Spontaneous
  Country: CN (occurrence: CN)
  Receive Date: 20250501
  Receipt Date: 20250501
  Transmission Date: 20250717
  Serious: Yes (Other)
  Sender: ABBVIE
  Company Number: CN-TAKEDA-2025TUS041021

PATIENT
  Age: 11 Year
  Sex: Male

DRUGS (1)
  1. ENANTONE LP [Suspect]
     Active Substance: LEUPROLIDE ACETATE
     Indication: Precocious puberty
     Dosage: 11.25 MILLIGRAM, 1/WEEK
     Route: 058
     Dates: start: 20250309, end: 20250309

REACTIONS (1)
  - Furuncle [Unknown]

NARRATIVE: CASE EVENT DATE: 20250419
